FAERS Safety Report 5240881-5 (Version None)
Quarter: 2007Q1

REPORT INFORMATION
  Report Type: 
  Country: None (occurrence: None)
  Receive Date: 20061208
  Receipt Date: 20050502
  Transmission Date: 20070707
  Serious: Yes (Other)
  Sender: FDA-Public Use
  Company Number: 2005UW06730

PATIENT
  Age: 84 Year
  Sex: Female
  Weight: 71.667 kg

DRUGS (7)
  1. CRESTOR [Suspect]
     Indication: BLOOD TRIGLYCERIDES INCREASED
     Dosage: 10 MG PO
     Route: 048
     Dates: start: 20050426
  2. COUMADIN [Concomitant]
  3. LEVOXYL [Concomitant]
  4. FUROSEMIDE [Concomitant]
  5. ZETIA [Concomitant]
  6. DIGITEK [Concomitant]
  7. MAGNESIUM [Concomitant]

REACTIONS (3)
  - HEAD DISCOMFORT [None]
  - MOTION SICKNESS [None]
  - STOMACH DISCOMFORT [None]
